FAERS Safety Report 8065158-4 (Version None)
Quarter: 2012Q1

REPORT INFORMATION
  Report Type: 
  Country: None (occurrence: None)
  Receive Date: 20120124
  Receipt Date: 20120111
  Transmission Date: 20120608
  Serious: Yes (Life-Threatening, Hospitalization)
  Sender: FDA-Public Use
  Company Number: DE-RANBAXY-2009RR-22387

PATIENT
  Age: 79 Year
  Sex: Male
  Weight: 58 kg

DRUGS (11)
  1. METAMIZOL NATRIUM [Concomitant]
     Indication: PAIN
     Dosage: 500 MG, UNK
     Route: 048
     Dates: end: 20080620
  2. RAMIPRIL [Suspect]
     Indication: HYPERTENSION
     Dosage: 1.25 MG, QD
     Route: 048
     Dates: end: 20080620
  3. PANTOPRAZOLE [Concomitant]
     Indication: DUODENAL ULCER
     Dosage: 40 MG, QD
     Route: 048
     Dates: start: 20080301, end: 20080620
  4. RISPERIDONE [Concomitant]
     Indication: DEMENTIA
     Dosage: 0.5 MG, QD
     Route: 048
     Dates: start: 20050101, end: 20080620
  5. SIMVASTATIN [Concomitant]
     Indication: CORONARY ARTERY DISEASE
     Dosage: 40 MG, QD
     Route: 048
     Dates: start: 20030101, end: 20080620
  6. TORSEMIDE [Suspect]
     Indication: HYPERTENSION
     Dosage: 10 MG, QD
     Route: 048
     Dates: end: 20080619
  7. ALDACTONE [Suspect]
     Indication: CARDIAC FAILURE
     Dosage: 25 MG, QD
     Route: 048
     Dates: end: 20080619
  8. FALITHROM ^HEXAL^ [Concomitant]
     Indication: CARDIAC FAILURE
     Dosage: UNK
     Route: 048
     Dates: end: 20080620
  9. METOCLOPRAMIDE [Concomitant]
     Indication: GASTROINTESTINAL MOTILITY DISORDER
     Dosage: 20 GTT, TID
     Route: 048
     Dates: start: 20080618, end: 20080620
  10. XIPAMIDE [Suspect]
     Indication: HYPERTENSION
     Dosage: 5 MG, QD
     Route: 048
     Dates: end: 20080620
  11. ALLOPURINOL [Concomitant]
     Indication: HYPERURICAEMIA
     Dosage: 300 MG, QD
     Route: 048
     Dates: start: 20000101, end: 20080620

REACTIONS (6)
  - ELECTROLYTE DEPLETION [None]
  - HYPONATRAEMIA [None]
  - HYPOKALAEMIA [None]
  - SYNCOPE [None]
  - DRUG INTERACTION [None]
  - PROTHROMBIN TIME PROLONGED [None]
